FAERS Safety Report 20213297 (Version 2)
Quarter: 2021Q4

REPORT INFORMATION
  Report Type: Spontaneous
  Country: US (occurrence: US)
  Receive Date: 20211221
  Receipt Date: 20211223
  Transmission Date: 20220303
  Serious: No
  Sender: FDA-Public Use
  Company Number: US-ELI_LILLY_AND_COMPANY-US202112005365

PATIENT
  Sex: Female

DRUGS (2)
  1. FORTEO [Suspect]
     Active Substance: TERIPARATIDE
     Indication: Product used for unknown indication
     Dosage: UNK, UNKNOWN
     Route: 065
  2. PROLIA [Suspect]
     Active Substance: DENOSUMAB
     Indication: Product used for unknown indication
     Dosage: UNK, UNKNOWN
     Route: 065

REACTIONS (9)
  - Fall [Unknown]
  - Upper limb fracture [Unknown]
  - Road traffic accident [Unknown]
  - Gait disturbance [Unknown]
  - Arthritis [Unknown]
  - Spinal stenosis [Unknown]
  - Musculoskeletal discomfort [Unknown]
  - Bone density decreased [Unknown]
  - Malaise [Unknown]
